FAERS Safety Report 9694039 (Version 2)
Quarter: 2014Q1

REPORT INFORMATION
  Report Type: Spontaneous
  Country: PT (occurrence: FR)
  Receive Date: 20131118
  Receipt Date: 20140106
  Transmission Date: 20141002
  Serious: Yes (Hospitalization, Other)
  Sender: FDA-Public Use
  Company Number: 2013SP003331

PATIENT
  Age: 71 Year
  Sex: Male
  Weight: 92 kg

DRUGS (7)
  1. ZEBINIX (ESLICARBAZEPINE ACETATE) [Suspect]
     Indication: PRODUCT USED FOR UNKNOWN INDICATION
     Route: 048
     Dates: start: 20131022, end: 20131022
  2. PREVISCAN                          /00261401/ [Concomitant]
  3. ALLOPURINOL [Concomitant]
  4. KARDEGIC [Concomitant]
  5. COLCHIMAX                          /01722001/ [Concomitant]
  6. LASILIX                            /00032601/ [Concomitant]
  7. APROVEL [Concomitant]

REACTIONS (4)
  - Confusional state [Recovered/Resolved]
  - Dysarthria [Recovering/Resolving]
  - Somnolence [Recovered/Resolved]
  - Wrong drug administered [None]
